FAERS Safety Report 6850176-1 (Version None)
Quarter: 2010Q3

REPORT INFORMATION
  Report Type: 
  Country: None (occurrence: None)
  Receive Date: 20100716
  Receipt Date: 20100709
  Transmission Date: 20110219
  Serious: Yes (Other)
  Sender: FDA-Public Use
  Company Number: CA-ABBOTT-10P-028-0648793-00

PATIENT
  Sex: Male
  Weight: 62 kg

DRUGS (3)
  1. HUMIRA [Suspect]
     Indication: CROHN'S DISEASE
     Dosage: 160 MG AT WEEK 0, 80 MG AT WEEK 2 AND THEN 40 MG EVERY 2 OTHER WEEK
     Route: 058
     Dates: start: 20080401, end: 20080901
  2. PENDOSA [Concomitant]
     Indication: PRODUCT USED FOR UNKNOWN INDICATION
  3. LOMOTIL [Concomitant]
     Indication: PRODUCT USED FOR UNKNOWN INDICATION

REACTIONS (4)
  - DERMATITIS [None]
  - EXFOLIATIVE RASH [None]
  - PSORIASIS [None]
  - SKIN FISSURES [None]
